FAERS Safety Report 5393009-5 (Version None)
Quarter: 2007Q3

REPORT INFORMATION
  Report Type: 
  Country: None (occurrence: None)
  Receive Date: 20070719
  Receipt Date: 20070706
  Transmission Date: 20080115
  Serious: Yes (Death)
  Sender: FDA-Public Use
  Company Number: L07-USA-02973-01

PATIENT
  Age: 62 Year
  Sex: Male

DRUGS (6)
  1. MEMANTINE HCL [Suspect]
     Dosage: 10 MG BID
  2. DONEPEZIL HCL [Concomitant]
  3. CLONAZEPAM [Concomitant]
  4. PROPOXYPHENE HYDROCHLORIDE [Concomitant]
  5. ACETAMINOPHEN [Concomitant]
  6. VENLAFAXINE HCL [Concomitant]

REACTIONS (6)
  - ARTERIOSCLEROSIS [None]
  - CARDIAC HYPERTROPHY [None]
  - CEREBRAL ATROPHY [None]
  - HOMICIDE [None]
  - POISONING [None]
  - UNRESPONSIVE TO STIMULI [None]
